FAERS Safety Report 6406956-X (Version None)
Quarter: 2009Q4

REPORT INFORMATION
  Report Type: 
  Country: None (occurrence: None)
  Receive Date: 20091020
  Receipt Date: 20091012
  Transmission Date: 20100525
  Serious: Yes (Death, Other)
  Sender: FDA-Public Use
  Company Number: TT-ELI_LILLY_AND_COMPANY-TT200910002772

PATIENT
  Age: 35 Year
  Sex: Male

DRUGS (1)
  1. TADALAFIL [Suspect]
     Dosage: UNK, UNKNOWN
     Route: 065

REACTIONS (4)
  - CHEST PAIN [None]
  - DEATH [None]
  - SHOCK [None]
  - THERAPEUTIC RESPONSE DECREASED [None]
